FAERS Safety Report 11128836 (Version 2)
Quarter: 2015Q3

REPORT INFORMATION
  Report Type: Spontaneous
  Country: US (occurrence: US)
  Receive Date: 20150521
  Receipt Date: 20150708
  Transmission Date: 20151125
  Serious: Yes (Hospitalization)
  Sender: FDA-Public Use
  Company Number: US-UCBSA-2015015972

PATIENT
  Age: 5 Year
  Sex: Male
  Weight: 22 kg

DRUGS (6)
  1. VIMPAT [Suspect]
     Active Substance: LACOSAMIDE
     Indication: SEIZURE
     Dosage: 100 MG, 2X/MONTH
     Dates: start: 20150115, end: 2015
  2. VIMPAT [Suspect]
     Active Substance: LACOSAMIDE
     Dosage: WEANED OFF DOSING
     Dates: start: 2015, end: 20150605
  3. KEPPRA [Suspect]
     Active Substance: LEVETIRACETAM
     Dosage: WEANED OFF DOSE
     Dates: start: 2015, end: 20150623
  4. KEPPRA [Suspect]
     Active Substance: LEVETIRACETAM
     Indication: SEIZURE
     Dosage: 500 MG, 2X/DAY (BID)
     Dates: start: 20150115, end: 2015
  5. ONFI [Concomitant]
     Active Substance: CLOBAZAM
     Indication: PRODUCT USED FOR UNKNOWN INDICATION
     Dosage: UNK
  6. DILANTIN [Concomitant]
     Active Substance: PHENYTOIN
     Indication: PRODUCT USED FOR UNKNOWN INDICATION
     Dosage: UNK

REACTIONS (7)
  - Seizure [Recovering/Resolving]
  - Fatigue [Unknown]
  - Dizziness [Unknown]
  - Irritability [Unknown]
  - Impulse-control disorder [Unknown]
  - Aggression [Unknown]
  - Nausea [Unknown]

NARRATIVE: CASE EVENT DATE: 2015
